FAERS Safety Report 25399287 (Version 1)
Quarter: 2025Q2

REPORT INFORMATION
  Report Type: Spontaneous
  Country: US (occurrence: US)
  Receive Date: 20250605
  Receipt Date: 20250605
  Transmission Date: 20250716
  Serious: Yes (Other)
  Sender: ROCHE
  Company Number: US-ROCHE-10000298714

PATIENT

DRUGS (1)
  1. OCREVUS [Suspect]
     Active Substance: OCRELIZUMAB
     Indication: Multiple sclerosis
     Route: 065

REACTIONS (9)
  - Respiratory tract infection [Unknown]
  - Peritonsillar abscess [Unknown]
  - Pneumonia [Unknown]
  - Pyelonephritis [Unknown]
  - Viral infection [Unknown]
  - Gastrointestinal infection [Unknown]
  - Seizure [Unknown]
  - Anxiety [Unknown]
  - Feeling of despair [Unknown]
